FAERS Safety Report 7610298-4 (Version None)
Quarter: 2011Q3

REPORT INFORMATION
  Report Type: 
  Country: None (occurrence: None)
  Receive Date: 20110713
  Receipt Date: 20110713
  Transmission Date: 20111222
  Serious: Yes (Life-Threatening)
  Sender: FDA-Public Use
  Company Number: None

PATIENT
  Sex: Female
  Weight: 63.5036 kg

DRUGS (3)
  1. METOPROLOL TARTRATE [Suspect]
     Indication: ATRIAL FIBRILLATION
     Dosage: 25 MG / 2 UP TO 6 DAILY MOUTH
     Route: 048
  2. METOPROLOL TARTRATE [Suspect]
     Indication: BLOOD PRESSURE
     Dosage: 25 MG / 2 UP TO 6 DAILY MOUTH
     Route: 048
  3. METOPROLOL TARTRATE [Suspect]
     Indication: HEART RATE INCREASED
     Dosage: 25 MG / 2 UP TO 6 DAILY MOUTH
     Route: 048

REACTIONS (2)
  - DYSPNOEA [None]
  - ACTIVITIES OF DAILY LIVING IMPAIRED [None]
